FAERS Safety Report 24539476 (Version 1)
Quarter: 2024Q4

REPORT INFORMATION
  Report Type: Spontaneous
  Country: US (occurrence: None)
  Receive Date: 20241022
  Receipt Date: 20241022
  Transmission Date: 20250115
  Serious: Yes (Hospitalization)
  Sender: Public
  Company Number: None

PATIENT
  Sex: Female

DRUGS (4)
  1. OPSUMIT [Suspect]
     Active Substance: MACITENTAN
     Indication: Pulmonary arterial hypertension
     Dosage: FREQUENCY : DAILY;?
     Route: 048
     Dates: start: 202404
  2. XELJANZ [Concomitant]
     Active Substance: TOFACITINIB CITRATE
  3. TREPROSTINIL MDV [Concomitant]
  4. WINREVAIR SDV [Concomitant]

REACTIONS (1)
  - COVID-19 [None]
